FAERS Safety Report 23793188 (Version 1)
Quarter: 2024Q2

REPORT INFORMATION
  Report Type: Spontaneous
  Country: CA (occurrence: CA)
  Receive Date: 20240429
  Receipt Date: 20240429
  Transmission Date: 20240716
  Serious: Yes (Death, Life-Threatening, Hospitalization, Other)
  Sender: FDA-Public Use
  Company Number: CA-ALKEM LABORATORIES LIMITED-TH-ALKEM-2023-03790

PATIENT
  Age: 84 Year
  Sex: Male
  Weight: 80 kg

DRUGS (1)
  1. DABIGATRAN ETEXILATE MESYLATE [Suspect]
     Active Substance: DABIGATRAN ETEXILATE MESYLATE
     Indication: Atrial fibrillation
     Dosage: 110 MILLIGRAM, BID (TWICE DAILY)
     Route: 065

REACTIONS (4)
  - Disease progression [Fatal]
  - Haemorrhage intracranial [Fatal]
  - Subdural haemorrhage [Not Recovered/Not Resolved]
  - Subarachnoid haemorrhage [Not Recovered/Not Resolved]
